FAERS Safety Report 25888701 (Version 1)
Quarter: 2025Q4

REPORT INFORMATION
  Report Type: Spontaneous
  Country: US (occurrence: US)
  Receive Date: 20251007
  Receipt Date: 20251007
  Transmission Date: 20260118
  Serious: No
  Sender: DR REDDYS
  Company Number: US-DRL-USA-USA/2025/09/014700

PATIENT
  Age: 83 Year
  Sex: Female

DRUGS (1)
  1. FULVESTRANT [Suspect]
     Active Substance: FULVESTRANT
     Indication: Product used for unknown indication
     Dosage: FULVESTRANT INJECTION, 250 MG/5 ML (50 MG/ML)

REACTIONS (8)
  - Back pain [Not Recovered/Not Resolved]
  - Mobility decreased [Not Recovered/Not Resolved]
  - Loss of personal independence in daily activities [Unknown]
  - Hypoaesthesia [Unknown]
  - Drug ineffective [Unknown]
  - Pain [Unknown]
  - Constipation [Unknown]
  - Therapy cessation [Unknown]
